FAERS Safety Report 11275965 (Version 1)
Quarter: 2015Q3

REPORT INFORMATION
  Report Type: Spontaneous
  Country: US (occurrence: None)
  Receive Date: 20150715
  Receipt Date: 20150715
  Transmission Date: 20151125
  Serious: Yes (Other)
  Sender: FDA-Public Use
  Company Number: None

PATIENT
  Age: 15 Year
  Sex: Female
  Weight: 55.79 kg

DRUGS (3)
  1. CETIRIZINE [Concomitant]
     Active Substance: CETIRIZINE HYDROCHLORIDE
  2. PREDNISONE. [Concomitant]
     Active Substance: PREDNISONE
  3. OMALIZUMAB [Suspect]
     Active Substance: OMALIZUMAB
     Indication: ASTHMA
     Route: 058
     Dates: start: 20131226, end: 20150617

REACTIONS (1)
  - Erythema [None]

NARRATIVE: CASE EVENT DATE: 20150617
